FAERS Safety Report 23851142 (Version 2)
Quarter: 2024Q3

REPORT INFORMATION
  Report Type: Report from Study
  Country: DE (occurrence: DE)
  Receive Date: 20240514
  Receipt Date: 20240801
  Transmission Date: 20241016
  Serious: Yes (Hospitalization, Other)
  Sender: AMGEN
  Company Number: DE-AMGEN-DEUSL2024091995

PATIENT
  Age: 59 Year
  Sex: Female

DRUGS (2)
  1. ADALIMUMAB [Suspect]
     Active Substance: ADALIMUMAB\ISOPROPYL ALCOHOL
     Indication: Psoriatic arthropathy
     Dosage: UNK UNK, Q2WK
     Route: 065
     Dates: start: 20230509
  2. ADALIMUMAB [Suspect]
     Active Substance: ADALIMUMAB\ISOPROPYL ALCOHOL
     Dosage: UNK UNK, Q2WK
     Route: 065

REACTIONS (4)
  - Sjogren^s syndrome [Unknown]
  - Spinal stenosis [Unknown]
  - Influenza [Unknown]
  - Fibromyalgia [Unknown]

NARRATIVE: CASE EVENT DATE: 20240101
